FAERS Safety Report 22184685 (Version 1)
Quarter: 2023Q2

REPORT INFORMATION
  Report Type: Spontaneous
  Country: US (occurrence: US)
  Receive Date: 20230407
  Receipt Date: 20230407
  Transmission Date: 20230722
  Serious: Yes (Hospitalization, Other)
  Sender: FDA-Public Use
  Company Number: US-MLMSERVICE-20211028-3190948-1

PATIENT
  Age: 35 Year
  Sex: Male

DRUGS (2)
  1. HALOPERIDOL [Interacting]
     Active Substance: HALOPERIDOL
     Indication: Substance use
     Dosage: CRUSHED; MISUSE
     Route: 055
  2. CANNABIS SATIVA SUBSP. INDICA TOP [Interacting]
     Active Substance: CANNABIS SATIVA SUBSP. INDICA TOP
     Indication: Product used for unknown indication
     Route: 065

REACTIONS (7)
  - Drug interaction [Recovered/Resolved]
  - Intentional product misuse [Unknown]
  - Schizophrenia [Unknown]
  - Dystonia [Recovered/Resolved]
  - Extrapyramidal disorder [Recovered/Resolved]
  - Muscle tightness [Unknown]
  - Treatment noncompliance [Unknown]
